FAERS Safety Report 14074186 (Version 4)
Quarter: 2018Q2

REPORT INFORMATION
  Report Type: Spontaneous
  Country: US (occurrence: US)
  Receive Date: 20171010
  Receipt Date: 20180531
  Transmission Date: 20180711
  Serious: Yes (Hospitalization)
  Sender: FDA-Public Use
  Company Number: US-PFIZER INC-2017436786

PATIENT
  Age: 76 Year
  Sex: Female
  Weight: 74.83 kg

DRUGS (12)
  1. LYRICA [Suspect]
     Active Substance: PREGABALIN
     Indication: NEUROPATHY PERIPHERAL
     Dosage: 25 MG, 3X/DAY
     Dates: start: 20170808
  2. LYRICA [Suspect]
     Active Substance: PREGABALIN
     Dosage: 50 MG, 2X/DAY
  3. ASPIRIN. [Concomitant]
     Active Substance: ASPIRIN
     Indication: PROPHYLAXIS
     Dosage: 81 MG, 1X/DAY
     Route: 048
     Dates: start: 2013
  4. LISINOPRIL. [Concomitant]
     Active Substance: LISINOPRIL
     Indication: BLOOD PRESSURE ABNORMAL
     Dosage: 40 MG, 1X/DAY
     Route: 048
     Dates: start: 2008
  5. ZYRTEC [Concomitant]
     Active Substance: CETIRIZINE HYDROCHLORIDE
     Indication: HYPERSENSITIVITY
     Dosage: 10 MG, 1X/DAY
     Route: 048
     Dates: start: 2012
  6. LYRICA [Suspect]
     Active Substance: PREGABALIN
     Dosage: 50 MG, UNK
  7. HYDROCHLOROTHIAZIDE. [Concomitant]
     Active Substance: HYDROCHLOROTHIAZIDE
     Indication: BLOOD PRESSURE ABNORMAL
     Dosage: 25 MG, 1X/DAY
     Route: 048
     Dates: start: 2008
  8. ALIGN [Concomitant]
     Active Substance: BIFIDOBACTERIUM LONGUM SUBSP. INFANTIS
     Indication: BOWEL MOVEMENT IRREGULARITY
     Dosage: 1 DF, DAILY
     Route: 048
     Dates: start: 2008
  9. ATORVASTATIN [Concomitant]
     Active Substance: ATORVASTATIN
     Indication: BLOOD CHOLESTEROL ABNORMAL
     Dosage: 80 MG, 1X/DAY
     Route: 048
     Dates: start: 2008
  10. NASONEX [Concomitant]
     Active Substance: MOMETASONE FUROATE
     Indication: HYPERSENSITIVITY
     Dosage: 100 MG, 1X/DAY (TWO SPRAYS EACH NOSTRIL ONCE A DAY)
     Route: 045
     Dates: start: 2012
  11. LYRICA [Suspect]
     Active Substance: PREGABALIN
     Dosage: 75 MG, 2X/DAY
     Route: 048
     Dates: start: 20171012
  12. AMLODIPINE [Concomitant]
     Active Substance: AMLODIPINE BESYLATE
     Indication: BLOOD PRESSURE ABNORMAL
     Dosage: 10 MG, 1X/DAY
     Route: 048
     Dates: start: 2008

REACTIONS (7)
  - Drug ineffective [Unknown]
  - Gait disturbance [Unknown]
  - Joint swelling [Not Recovered/Not Resolved]
  - Pain [Not Recovered/Not Resolved]
  - Back disorder [Unknown]
  - Polyp [Unknown]
  - Swelling [Unknown]

NARRATIVE: CASE EVENT DATE: 20170808
